FAERS Safety Report 6610495-0 (Version None)
Quarter: 2010Q1

REPORT INFORMATION
  Report Type: 
  Country: None (occurrence: None)
  Receive Date: 20100302
  Receipt Date: 20100223
  Transmission Date: 20100710
  Serious: Yes (Hospitalization)
  Sender: FDA-Public Use
  Company Number: PHHO2010IT00742

PATIENT
  Sex: Female
  Weight: 57 kg

DRUGS (1)
  1. CERTICAN [Suspect]
     Indication: RENAL TRANSPLANT
     Dosage: 3 MG
     Route: 048
     Dates: start: 20091104

REACTIONS (4)
  - HYDRONEPHROSIS [None]
  - LYMPHOCELE [None]
  - SURGERY [None]
  - URINARY TRACT OBSTRUCTION [None]
